FAERS Safety Report 9803615 (Version 1)
Quarter: 2014Q1

REPORT INFORMATION
  Report Type: Spontaneous
  Country: US (occurrence: US)
  Receive Date: 20140108
  Receipt Date: 20140108
  Transmission Date: 20141002
  Serious: No
  Sender: FDA-Public Use
  Company Number: US-GLAXOSMITHKLINE-A1013086A

PATIENT
  Age: 17 Year
  Sex: Male

DRUGS (11)
  1. LOVAZA [Suspect]
     Indication: BLOOD TRIGLYCERIDES INCREASED
     Dosage: 2CAP TWICE PER DAY
     Route: 048
     Dates: start: 201205
  2. TACROLIMUS [Concomitant]
  3. RAPAMUNE [Concomitant]
  4. MYFORTIC [Concomitant]
  5. FOLIC ACID [Concomitant]
  6. BABY ASPIRIN [Concomitant]
  7. PREDNISONE [Concomitant]
  8. ATENOLOL [Concomitant]
  9. DIPYRIDAMOLE [Concomitant]
  10. ANTACID [Concomitant]
  11. MULTIVITAMIN [Concomitant]

REACTIONS (2)
  - Retching [Recovered/Resolved]
  - Product quality issue [Unknown]
